FAERS Safety Report 9366952 (Version 2)
Quarter: 2013Q3

REPORT INFORMATION
  Report Type: Report from Study
  Country: JP (occurrence: JP)
  Receive Date: 20130625
  Receipt Date: 20130709
  Transmission Date: 20140515
  Serious: Yes (Hospitalization)
  Sender: FDA-Public Use
  Company Number: JP-GLAXOSMITHKLINE-B0868425A

PATIENT
  Age: 75 Year
  Sex: Male
  Weight: 61 kg

DRUGS (8)
  1. VOTRIENT [Suspect]
     Indication: SPINDLE CELL SARCOMA
     Dosage: 600MG PER DAY
     Route: 048
     Dates: start: 20130121, end: 20130127
  2. VOTRIENT [Suspect]
     Indication: SPINDLE CELL SARCOMA
     Dosage: 800MG PER DAY
     Route: 048
     Dates: start: 20130128, end: 20130131
  3. VOTRIENT [Suspect]
     Indication: SPINDLE CELL SARCOMA
     Dosage: 600MG PER DAY
     Route: 048
     Dates: start: 20130201, end: 20130203
  4. VOTRIENT [Suspect]
     Indication: SPINDLE CELL SARCOMA
     Dosage: 400MG PER DAY
     Route: 048
     Dates: start: 20130204, end: 20130206
  5. VOTRIENT [Suspect]
     Indication: SPINDLE CELL SARCOMA
     Dosage: 200MG PER DAY
     Route: 048
     Dates: start: 20130227, end: 20130506
  6. NORVASC [Concomitant]
     Route: 048
  7. AMARYL [Concomitant]
     Route: 048
  8. MAGMITT [Concomitant]
     Route: 048

REACTIONS (3)
  - Platelet count decreased [Recovered/Resolved]
  - Hepatic function abnormal [Recovered/Resolved]
  - Blood thyroid stimulating hormone [Recovering/Resolving]
